FAERS Safety Report 24104506 (Version 3)
Quarter: 2024Q3

REPORT INFORMATION
  Report Type: Spontaneous
  Country: GB (occurrence: GB)
  Receive Date: 20240717
  Receipt Date: 20240919
  Transmission Date: 20241017
  Serious: Yes (Hospitalization)
  Sender: MYLAN
  Company Number: GB-MYLANLABS-2024M1065292

PATIENT
  Sex: Male
  Weight: 57.4 kg

DRUGS (10)
  1. CLOZARIL [Suspect]
     Active Substance: CLOZAPINE
     Indication: Schizophrenia
     Dosage: UNK
     Route: 048
     Dates: start: 20120528
  2. PROMETHAZINE [Concomitant]
     Active Substance: PROMETHAZINE HYDROCHLORIDE
     Indication: Agitation
     Dosage: 25 MILLIGRAM, STAT
     Route: 030
     Dates: start: 20240709
  3. PROMETHAZINE [Concomitant]
     Active Substance: PROMETHAZINE HYDROCHLORIDE
     Indication: Sedation complication
  4. HALOPERIDOL [Concomitant]
     Active Substance: HALOPERIDOL
     Indication: Agitation
     Dosage: 5 MILLIGRAM, BID (2X DOSES)
     Route: 030
     Dates: start: 20240709
  5. HALOPERIDOL [Concomitant]
     Active Substance: HALOPERIDOL
     Indication: Sedation complication
  6. PROMETHAZINE [Concomitant]
     Active Substance: PROMETHAZINE HYDROCHLORIDE
     Indication: Agitation
     Dosage: 25 MILLIGRAM (UP TO 2 TIMES A DAY PRN)
     Route: 048
     Dates: start: 20240710
  7. LORAZEPAM [Concomitant]
     Active Substance: LORAZEPAM
     Indication: Agitation
     Dosage: 1 MILLIGRAM, (UP TO 2 TIMES A DAY PRN)
     Route: 048
     Dates: start: 20240710
  8. LORAZEPAM [Concomitant]
     Active Substance: LORAZEPAM
     Dosage: 2 MILLIGRAM, STAT
     Route: 048
     Dates: start: 20240710
  9. LORAZEPAM [Concomitant]
     Active Substance: LORAZEPAM
     Dosage: 1 MILLIGRAM, (1 TIMES A DAY PRN)
     Route: 048
     Dates: start: 20240711
  10. PROCYCLIDINE [Concomitant]
     Active Substance: PROCYCLIDINE
     Indication: Extrapyramidal disorder
     Dosage: 5 MILLIGRAM, BID
     Route: 048
     Dates: start: 20240709

REACTIONS (3)
  - Schizophrenia [Unknown]
  - Mental impairment [Unknown]
  - Hallucination, auditory [Unknown]
